FAERS Safety Report 4903537-1 (Version None)
Quarter: 2006Q1

REPORT INFORMATION
  Report Type: 
  Country: None (occurrence: None)
  Receive Date: 20060131
  Receipt Date: 20050520
  Transmission Date: 20060701
  Serious: Yes (Death, Other)
  Sender: FDA-Public Use
  Company Number: 2006BH000234

PATIENT
  Sex: Male

DRUGS (2)
  1. HEMOFIL [Suspect]
     Indication: FACTOR VIII DEFICIENCY
  2. PROPLEX T (FACTOR 1X COMPLEX HUMAN) [Suspect]
     Indication: FACTOR VIII DEFICIENCY

REACTIONS (1)
  - HIV INFECTION [None]
